FAERS Safety Report 20263462 (Version 2)
Quarter: 2022Q2

REPORT INFORMATION
  Report Type: Report from Study
  Country: FR (occurrence: FR)
  Receive Date: 20211231
  Receipt Date: 20220614
  Transmission Date: 20220721
  Serious: Yes (Hospitalization, Other)
  Sender: FDA-Public Use
  Company Number: FR-TAKEDA-FR201730731

PATIENT
  Age: 72 Year
  Sex: Male
  Weight: 68 kg

DRUGS (20)
  1. TEDUGLUTIDE [Suspect]
     Active Substance: TEDUGLUTIDE
     Indication: Short-bowel syndrome
     Dosage: 3.4 MILLIGRAM, QD
     Route: 042
     Dates: start: 20160219, end: 20160428
  2. TEDUGLUTIDE [Suspect]
     Active Substance: TEDUGLUTIDE
     Indication: Short-bowel syndrome
     Dosage: 3.4 MILLIGRAM, QD
     Route: 042
     Dates: start: 20160219, end: 20160428
  3. TEDUGLUTIDE [Suspect]
     Active Substance: TEDUGLUTIDE
     Indication: Short-bowel syndrome
     Dosage: 3.4 MILLIGRAM, QD
     Route: 042
     Dates: start: 20160219, end: 20160428
  4. TEDUGLUTIDE [Suspect]
     Active Substance: TEDUGLUTIDE
     Indication: Short-bowel syndrome
     Dosage: 3.4 MILLIGRAM, QD
     Route: 042
     Dates: start: 20160219, end: 20160428
  5. TEDUGLUTIDE [Suspect]
     Active Substance: TEDUGLUTIDE
     Dosage: 3.400 MILLIGRAM, QD
     Route: 042
     Dates: start: 20160510, end: 20160517
  6. TEDUGLUTIDE [Suspect]
     Active Substance: TEDUGLUTIDE
     Dosage: 3.400 MILLIGRAM, QD
     Route: 042
     Dates: start: 20160510, end: 20160517
  7. TEDUGLUTIDE [Suspect]
     Active Substance: TEDUGLUTIDE
     Dosage: 3.400 MILLIGRAM, QD
     Route: 042
     Dates: start: 20160510, end: 20160517
  8. TEDUGLUTIDE [Suspect]
     Active Substance: TEDUGLUTIDE
     Dosage: 3.400 MILLIGRAM, QD
     Route: 042
     Dates: start: 20160510, end: 20160517
  9. TEDUGLUTIDE [Suspect]
     Active Substance: TEDUGLUTIDE
     Dosage: 3.400 MILLIGRAM, QD
     Route: 042
     Dates: start: 20160525, end: 20160615
  10. TEDUGLUTIDE [Suspect]
     Active Substance: TEDUGLUTIDE
     Dosage: 3.400 MILLIGRAM, QD
     Route: 042
     Dates: start: 20160525, end: 20160615
  11. TEDUGLUTIDE [Suspect]
     Active Substance: TEDUGLUTIDE
     Dosage: 3.400 MILLIGRAM, QD
     Route: 042
     Dates: start: 20160525, end: 20160615
  12. TEDUGLUTIDE [Suspect]
     Active Substance: TEDUGLUTIDE
     Dosage: 3.400 MILLIGRAM, QD
     Route: 042
     Dates: start: 20160525, end: 20160615
  13. TEDUGLUTIDE [Suspect]
     Active Substance: TEDUGLUTIDE
     Dosage: 3.400 MILLIGRAM, QD
     Route: 042
     Dates: start: 20160818, end: 201906
  14. TEDUGLUTIDE [Suspect]
     Active Substance: TEDUGLUTIDE
     Dosage: 3.400 MILLIGRAM, QD
     Route: 042
     Dates: start: 20160818, end: 201906
  15. TEDUGLUTIDE [Suspect]
     Active Substance: TEDUGLUTIDE
     Dosage: 3.400 MILLIGRAM, QD
     Route: 042
     Dates: start: 20160818, end: 201906
  16. TEDUGLUTIDE [Suspect]
     Active Substance: TEDUGLUTIDE
     Dosage: 3.400 MILLIGRAM, QD
     Route: 042
     Dates: start: 20160818, end: 201906
  17. ARIXTRA [Concomitant]
     Active Substance: FONDAPARINUX SODIUM
     Indication: Thrombosis prophylaxis
     Dosage: 2.50 MILLIGRAM, QD
     Route: 058
     Dates: start: 20170808, end: 2017
  18. AMLODIPINE BESYLATE [Concomitant]
     Active Substance: AMLODIPINE BESYLATE
     Indication: Blood pressure increased
     Dosage: 10.00 MILLIGRAM, QD
     Route: 048
     Dates: start: 2017
  19. XANAX [Concomitant]
     Active Substance: ALPRAZOLAM
     Indication: Depression
     Dosage: 0.25 MILLIGRAM, QD
     Route: 048
     Dates: start: 20161107
  20. LANSOPRAZOLE [Concomitant]
     Active Substance: LANSOPRAZOLE
     Indication: Gastric disorder
     Dosage: 30.00 MILLIGRAM, BID
     Route: 048
     Dates: start: 20161014, end: 2016

REACTIONS (1)
  - Acute kidney injury [Recovered/Resolved]

NARRATIVE: CASE EVENT DATE: 20170705
